FAERS Safety Report 10595764 (Version 2)
Quarter: 2015Q1

REPORT INFORMATION
  Report Type: Spontaneous
  Country: US (occurrence: US)
  Receive Date: 20141120
  Receipt Date: 20150217
  Transmission Date: 20150720
  Serious: No
  Sender: FDA-Public Use
  Company Number: US-AMARIN PHARMA, INC.-2014AMR000069

PATIENT
  Age: 72 Year
  Sex: Male
  Weight: 95.34 kg

DRUGS (3)
  1. VASCEPA [Suspect]
     Active Substance: ETHYL ICOSAPENTATE
     Indication: HYPERTRIGLYCERIDAEMIA
     Route: 048
     Dates: start: 20140921, end: 20141003
  2. MEDICATION FOR CROHN^S DISEASE [Concomitant]
     Indication: CROHN^S DISEASE
  3. WARFARIN [Concomitant]
     Active Substance: WARFARIN
     Indication: PROPHYLAXIS

REACTIONS (2)
  - Burning sensation [Recovering/Resolving]
  - Arthralgia [Not Recovered/Not Resolved]

NARRATIVE: CASE EVENT DATE: 20140929
